FAERS Safety Report 17655517 (Version 2)
Quarter: 2020Q3

REPORT INFORMATION
  Report Type: Spontaneous
  Country: US (occurrence: US)
  Receive Date: 20200410
  Receipt Date: 20200814
  Transmission Date: 20201102
  Serious: No
  Sender: FDA-Public Use
  Company Number: US-PFIZER INC-2020146718

PATIENT
  Age: 82 Year
  Sex: Female

DRUGS (1)
  1. LATANOPROST. [Suspect]
     Active Substance: LATANOPROST
     Indication: GLAUCOMA
     Dosage: 2 GTT (DROPS), 1X/DAY (ONE DROP IN EACH EYE BEFORE BEDTIME DAILY/125MCG/2.5ML)
     Route: 047
     Dates: start: 20190405

REACTIONS (1)
  - Eye irritation [Recovered/Resolved]
